FAERS Safety Report 8348713-3 (Version None)
Quarter: 2012Q2

REPORT INFORMATION
  Report Type: 
  Country: None (occurrence: None)
  Receive Date: 20120510
  Receipt Date: 20120508
  Transmission Date: 20120825
  Serious: Yes (Disabling)
  Sender: FDA-Public Use
  Company Number: US-PFIZER INC-2012088108

PATIENT
  Sex: Male

DRUGS (4)
  1. PROTONIX [Concomitant]
     Dosage: UNK
  2. PERCOCET [Concomitant]
     Dosage: UNK
  3. CHANTIX [Suspect]
     Dosage: UNK
  4. WELLBUTRIN SR [Concomitant]
     Dosage: UNK

REACTIONS (1)
  - ROAD TRAFFIC ACCIDENT [None]
